FAERS Safety Report 9993193 (Version 1)
Quarter: 2014Q1

REPORT INFORMATION
  Report Type: Report from Study
  Country: US (occurrence: US)
  Receive Date: 20140310
  Receipt Date: 20140310
  Transmission Date: 20141002
  Serious: No
  Sender: FDA-Public Use
  Company Number: US-ABBVIE-14P-163-1202780-00

PATIENT
  Age: 45 Year
  Sex: Female
  Weight: 59.93 kg

DRUGS (2)
  1. LUPRON DEPOT [Suspect]
     Indication: ENDOMETRIOSIS
     Route: 030
     Dates: start: 201308, end: 201308
  2. LUPRON DEPOT [Suspect]
     Indication: UTERINE LEIOMYOMA

REACTIONS (7)
  - Frustration [Not Recovered/Not Resolved]
  - Hot flush [Recovered/Resolved]
  - Abdominal pain [Not Recovered/Not Resolved]
  - Pelvic pain [Not Recovered/Not Resolved]
  - Influenza [Recovering/Resolving]
  - Vaginal haemorrhage [Recovered/Resolved]
  - Anxiety [Not Recovered/Not Resolved]
